FAERS Safety Report 7629014-5 (Version None)
Quarter: 2011Q3

REPORT INFORMATION
  Report Type: 
  Country: None (occurrence: None)
  Receive Date: 20110701
  Receipt Date: 20110407
  Transmission Date: 20111222
  Serious: Yes (Other)
  Sender: FDA-Public Use
  Company Number: 7052690

PATIENT
  Age: 50 Year
  Sex: Female

DRUGS (3)
  1. DEPAKOTE [Concomitant]
  2. REBIF [Suspect]
     Indication: MULTIPLE SCLEROSIS
     Dosage: 44 MCG, 3 IN 1 WK, SUBCUTANEOUS
     Route: 058
     Dates: start: 20030409
  3. GABAPENTIN [Concomitant]

REACTIONS (10)
  - INJECTION SITE PAIN [None]
  - FALL [None]
  - VISUAL IMPAIRMENT [None]
  - CONVULSION [None]
  - APHASIA [None]
  - HEADACHE [None]
  - AMNESIA [None]
  - SENSATION OF HEAVINESS [None]
  - PAIN IN EXTREMITY [None]
  - INJECTION SITE ERYTHEMA [None]
